FAERS Safety Report 6359407-8 (Version None)
Quarter: 2009Q3

REPORT INFORMATION
  Report Type: 
  Country: None (occurrence: None)
  Receive Date: 20090917
  Receipt Date: 20090914
  Transmission Date: 20100115
  Serious: Yes (Hospitalization, Other)
  Sender: FDA-Public Use
  Company Number: AU-ROXANE LABORATORIES, INC.-2009-RO-00939RO

PATIENT
  Age: 20 Year
  Sex: Male

DRUGS (11)
  1. PREDNISONE [Suspect]
     Indication: MENINGITIS TUBERCULOUS
  2. PREDNISONE [Suspect]
  3. PREDNISONE [Suspect]
     Route: 048
  4. PREDNISONE [Suspect]
     Route: 048
  5. PREDNISONE [Suspect]
     Route: 048
  6. ISONIAZID [Suspect]
     Indication: MENINGITIS TUBERCULOUS
  7. ETHAMBUTOL [Suspect]
     Indication: MENINGITIS TUBERCULOUS
  8. PYRAZINAMIDE [Suspect]
     Indication: MENINGITIS TUBERCULOUS
  9. RIFAMPICIN [Suspect]
     Indication: MENINGITIS TUBERCULOUS
  10. OLANZAPINE [Concomitant]
     Indication: IRRITABILITY
     Dosage: 5 MG
  11. OLANZAPINE [Concomitant]
     Indication: ANXIETY

REACTIONS (5)
  - AGITATION [None]
  - ANXIETY [None]
  - IRRITABILITY [None]
  - PSYCHOTIC DISORDER [None]
  - SUICIDAL IDEATION [None]
